FAERS Safety Report 14296420 (Version 3)
Quarter: 2018Q2

REPORT INFORMATION
  Report Type: Spontaneous
  Country: US (occurrence: US)
  Receive Date: 20171218
  Receipt Date: 20180625
  Transmission Date: 20180711
  Serious: Yes (Death, Hospitalization)
  Sender: FDA-Public Use
  Company Number: US-PFIZER INC-2017536472

PATIENT
  Age: 89 Year
  Sex: Female
  Weight: 58.97 kg

DRUGS (2)
  1. IBRANCE [Suspect]
     Active Substance: PALBOCICLIB
     Dosage: 125 MG, CYCLIC (ONCE A DAY 21 DAYS ON, 7 OFF)
     Route: 048
     Dates: start: 20170511
  2. IBRANCE [Suspect]
     Active Substance: PALBOCICLIB
     Indication: BREAST CANCER
     Dosage: 125 MG, CYCLIC (DAILY FOR 21 DAYS AND OFF 7 DAYS)
     Route: 048
     Dates: start: 201705

REACTIONS (2)
  - Death [Fatal]
  - Hernia [Recovered/Resolved]

NARRATIVE: CASE EVENT DATE: 20171125
